FAERS Safety Report 23851196 (Version 2)
Quarter: 2024Q2

REPORT INFORMATION
  Report Type: Spontaneous
  Country: IT (occurrence: IT)
  Receive Date: 20240514
  Receipt Date: 20240601
  Transmission Date: 20240715
  Serious: Yes (Hospitalization)
  Sender: FDA-Public Use
  Company Number: IT-MINISAL02-983268

PATIENT
  Age: 69 Year
  Sex: Male

DRUGS (5)
  1. QUETIAPINE [Suspect]
     Active Substance: QUETIAPINE
     Indication: Schizophrenia
     Dosage: 100 MILLIGRAM, 3 TIMES A DAY
     Route: 048
     Dates: start: 20240415
  2. RIVOTRIL [Suspect]
     Active Substance: CLONAZEPAM
     Indication: Epilepsy
     Dosage: 1 MILLILITER, 3 TIMES A DAY
     Route: 048
     Dates: start: 20240415
  3. VALPROATE SODIUM [Suspect]
     Active Substance: VALPROATE SODIUM
     Indication: Epilepsy
     Dosage: 500 MILLILITER, 3 TIMES A DAY
     Route: 048
     Dates: start: 20240415
  4. ZUCLOPENTHIXOL [Suspect]
     Active Substance: ZUCLOPENTHIXOL
     Indication: Schizophrenia
     Dosage: 10 (GGT), 3 TIMES A DAY
     Route: 048
     Dates: start: 20240415
  5. LISINOPRIL [Concomitant]
     Active Substance: LISINOPRIL
     Indication: Hypertension
     Dosage: 20 MILLIGRAM, ONCE A DAY
     Route: 048
     Dates: start: 20240415

REACTIONS (2)
  - Sopor [Recovered/Resolved]
  - Diarrhoea [Recovered/Resolved]

NARRATIVE: CASE EVENT DATE: 20240416
